FAERS Safety Report 9785771 (Version 1)
Quarter: 2013Q4

REPORT INFORMATION
  Report Type: Spontaneous
  Country: JP (occurrence: None)
  Receive Date: 20131223
  Receipt Date: 20131223
  Transmission Date: 20140711
  Serious: Yes (Other)
  Sender: FDA-Public Use
  Company Number: SYM-2013-14022

PATIENT
  Sex: Female

DRUGS (5)
  1. FLUOROURACIL (FLUOROURACIL) (FLUOROURACIL) [Suspect]
     Indication: HER-2 POSITIVE BREAST CANCER
  2. TAXOTERE (DOCETAXEL) (DOCETAXEL) [Suspect]
     Indication: HER-2 POSITIVE BREAST CANCER
     Dates: start: 20100706, end: 20101221
  3. CYCLOPHOSPHAMIDE (CYCLOPHOSPHAMIDE) (CYCLOPHOSPHAMIDE) [Suspect]
     Indication: HER-2 POSITIVE BREAST CANCER
  4. EPIRUBICIN (EPIRUBICIN) (EPIRUBICIN) [Suspect]
     Indication: HER-2 POSITIVE BREAST CANCER
  5. HERCEPTIN (TRASTUZUMAB) (TRASTUZUMAB) [Suspect]
     Indication: HER-2 POSITIVE BREAST CANCER
     Dates: start: 20101005, end: 20101221

REACTIONS (1)
  - Neutrophil count decreased [None]
